FAERS Safety Report 8105640-4 (Version None)
Quarter: 2012Q1

REPORT INFORMATION
  Report Type: 
  Country: None (occurrence: None)
  Receive Date: 20120201
  Receipt Date: 20120123
  Transmission Date: 20120608
  Serious: Yes (Other)
  Sender: FDA-Public Use
  Company Number: CHPA2012US002129

PATIENT
  Age: 61 Year
  Sex: Male

DRUGS (1)
  1. EXCEDRIN EXTRA STRENGTH TABLETS [Suspect]
     Dosage: UNK, UNK
     Route: 048

REACTIONS (5)
  - WEIGHT DECREASED [None]
  - MALAISE [None]
  - HEPATITIS [None]
  - ASTHENIA [None]
  - VOMITING [None]
